FAERS Safety Report 10305605 (Version 1)
Quarter: 2014Q3

REPORT INFORMATION
  Report Type: Spontaneous
  Country: US (occurrence: None)
  Receive Date: 20140714
  Receipt Date: 20140714
  Transmission Date: 20150326
  Serious: Yes (Life-Threatening, Hospitalization, Other)
  Sender: FDA-Public Use
  Company Number: None

PATIENT
  Age: 72 Year
  Sex: Female
  Weight: 59.3 kg

DRUGS (16)
  1. METOPROLOL [Concomitant]
     Active Substance: METOPROLOL
  2. PANTOPRAZOLE [Concomitant]
     Active Substance: PANTOPRAZOLE SODIUM
  3. ACETAMINOPHEN. [Concomitant]
     Active Substance: ACETAMINOPHEN
  4. SENNA [Concomitant]
     Active Substance: SENNA LEAF\SENNOSIDES\SENNOSIDES A AND B
  5. ASPIRIN. [Concomitant]
     Active Substance: ASPIRIN
  6. LORAZEPAM. [Concomitant]
     Active Substance: LORAZEPAM
  7. CLONIDINE. [Concomitant]
     Active Substance: CLONIDINE
  8. LABETALOL [Concomitant]
     Active Substance: LABETALOL\LABETALOL HYDROCHLORIDE
  9. DOCUSATE SODIUM. [Concomitant]
     Active Substance: DOCUSATE SODIUM
  10. POLYETHYLENE GLYCOL [Concomitant]
     Active Substance: POLYETHYLENE GLYCOLS
  11. SODIUM CHLORIDE 0.45%  WITH KCL [Concomitant]
  12. ATORVASTATIN [Concomitant]
     Active Substance: ATORVASTATIN
  13. LOSARTAN [Concomitant]
     Active Substance: LOSARTAN
  14. MAGNESIUM HYDROXIDE. [Concomitant]
     Active Substance: MAGNESIUM HYDROXIDE
  15. ONDANSETRON [Concomitant]
     Active Substance: ONDANSETRON
  16. CYRAMZA [Suspect]
     Active Substance: RAMUCIRUMAB
     Indication: GASTRIC CANCER
     Dosage: 500 MG ?EVERY TWO WEEKS ?INTRAVENOUS
     Route: 042
     Dates: start: 20140605, end: 20140618

REACTIONS (5)
  - Aphasia [None]
  - Headache [None]
  - Transient ischaemic attack [None]
  - Hypertensive encephalopathy [None]
  - Hypoacusis [None]

NARRATIVE: CASE EVENT DATE: 20140709
